FAERS Safety Report 7677196-1 (Version None)
Quarter: 2011Q3

REPORT INFORMATION
  Report Type: 
  Country: None (occurrence: None)
  Receive Date: 20110811
  Receipt Date: 20110803
  Transmission Date: 20111222
  Serious: Yes (Death, Hospitalization)
  Sender: FDA-Public Use
  Company Number: JP-AMGEN-US283061

PATIENT
  Age: 69 Year
  Sex: Female
  Weight: 45 kg

DRUGS (15)
  1. ENBREL [Suspect]
     Dosage: 25 MG, 1 TIME PER WEEK
     Dates: start: 20071029, end: 20080101
  2. FOSAMAX [Concomitant]
     Dosage: UNK
     Dates: start: 20051025, end: 20071028
  3. FOSAMAX [Concomitant]
     Dosage: UNK
     Route: 048
     Dates: start: 20071029
  4. MAALOX                             /00091001/ [Concomitant]
     Dosage: UNK
     Route: 048
     Dates: start: 20071004
  5. ENBREL [Suspect]
     Indication: RHEUMATOID ARTHRITIS
     Dosage: 25 MG, 2 TIMES/WK
     Route: 058
     Dates: start: 20070906, end: 20071029
  6. PYRIDOXINE HCL [Concomitant]
     Dosage: UNK
     Route: 048
     Dates: start: 20051023, end: 20070912
  7. ENBREL [Suspect]
     Dosage: 25 MG, ONCE EVERY 7 TO 10 DAYS
     Dates: start: 20080101, end: 20080416
  8. PREDNISOLONE [Suspect]
     Dosage: BETWEEN 5 AND 10 MG PER DAY
     Route: 048
     Dates: start: 20010501
  9. PYDOXAL [Concomitant]
     Dosage: UNK
     Route: 048
     Dates: start: 20070913
  10. GASTER                             /00706001/ [Concomitant]
     Dosage: UNK
     Route: 048
     Dates: start: 20071112
  11. PREDNISOLONE [Suspect]
     Dosage: 30 MG, 1X/DAY
     Route: 048
     Dates: start: 20010530
  12. ISONIAZID [Concomitant]
     Dosage: UNK
     Route: 048
     Dates: start: 20051023
  13. ISONIAZID [Concomitant]
     Dosage: UNK
     Dates: start: 20070906
  14. GLAKAY [Concomitant]
     Dosage: UNK
     Route: 048
     Dates: start: 20070822
  15. RABEPRAZOLE SODIUM [Concomitant]
     Dosage: UNK
     Route: 048
     Dates: start: 20071001, end: 20071111

REACTIONS (4)
  - ACUTE RESPIRATORY DISTRESS SYNDROME [None]
  - DISSEMINATED TUBERCULOSIS [None]
  - CONDITION AGGRAVATED [None]
  - INTERSTITIAL LUNG DISEASE [None]
